FAERS Safety Report 25494765 (Version 1)
Quarter: 2025Q2

REPORT INFORMATION
  Report Type: Spontaneous
  Country: CA (occurrence: CA)
  Receive Date: 20250630
  Receipt Date: 20250630
  Transmission Date: 20250717
  Serious: Yes (Other)
  Sender: BRACCO
  Company Number: CA-BRACCO-2025CA04188

PATIENT
  Age: 36 Year
  Sex: Female

DRUGS (1)
  1. ISOVUE 370 [Suspect]
     Active Substance: IOPAMIDOL

REACTIONS (2)
  - Foaming at mouth [Recovered/Resolved]
  - Skin discolouration [Recovered/Resolved]
